FAERS Safety Report 20575824 (Version 2)
Quarter: 2022Q2

REPORT INFORMATION
  Report Type: Report from Study
  Country: US (occurrence: US)
  Receive Date: 20220310
  Receipt Date: 20220519
  Transmission Date: 20220720
  Serious: Yes (Other)
  Sender: FDA-Public Use
  Company Number: US-NOVARTISPH-NVSC2022US053242

PATIENT
  Sex: Female

DRUGS (2)
  1. PIQRAY [Suspect]
     Active Substance: ALPELISIB
     Indication: Product used for unknown indication
     Dosage: UNK
     Route: 048
  2. AFINITOR [Suspect]
     Active Substance: EVEROLIMUS
     Indication: Product used for unknown indication
     Dosage: UNK
     Route: 065

REACTIONS (10)
  - Skin cancer [Unknown]
  - Diabetic ketoacidosis [Unknown]
  - Urine output increased [Unknown]
  - Polydipsia [Unknown]
  - Gait inability [Unknown]
  - Post procedural infection [Unknown]
  - Skin infection [Unknown]
  - Ageusia [Unknown]
  - Limb discomfort [Unknown]
  - Blood glucose increased [Unknown]
